FAERS Safety Report 4587724-0 (Version None)
Quarter: 2005Q1

REPORT INFORMATION
  Report Type: 
  Country: None (occurrence: None)
  Receive Date: 20050218
  Receipt Date: 20041228
  Transmission Date: 20050727
  Serious: Yes (Hospitalization, Disabling)
  Sender: FDA-Public Use
  Company Number: SE-MERCK-0412SWE00041

PATIENT
  Age: 50 Year
  Sex: Female

DRUGS (2)
  1. VIOXX [Suspect]
     Indication: EXOSTOSIS
     Route: 048
     Dates: start: 20000101, end: 20030901
  2. ATENOLOL [Concomitant]
     Indication: HYPERTENSION
     Route: 048

REACTIONS (2)
  - AORTIC DISORDER [None]
  - TRANSIENT ISCHAEMIC ATTACK [None]
